FAERS Safety Report 4909874-9 (Version None)
Quarter: 2006Q1

REPORT INFORMATION
  Report Type: 
  Country: None (occurrence: None)
  Receive Date: 20060208
  Receipt Date: 20060130
  Transmission Date: 20060701
  Serious: Yes (Other)
  Sender: FDA-Public Use
  Company Number: 230511K06USA

PATIENT
  Age: 50 Year
  Sex: Female

DRUGS (2)
  1. REBIF [Suspect]
     Indication: MULTIPLE SCLEROSIS
     Dosage: 44 MCG, 3 IN 1 WEEKS, SUBCUTANEOUS
     Route: 058
     Dates: start: 20050121
  2. IMMUNOGLOBULIN (IMMUNOGLOBULIN HUMAN NORMAL) [Concomitant]

REACTIONS (6)
  - ALOPECIA [None]
  - CONDITION AGGRAVATED [None]
  - ERYTHEMA [None]
  - LEUKAEMIA [None]
  - MULTIPLE SCLEROSIS [None]
  - THYROID FUNCTION TEST ABNORMAL [None]
